FAERS Safety Report 12338596 (Version 1)
Quarter: 2016Q2

REPORT INFORMATION
  Report Type: Spontaneous
  Country: US (occurrence: US)
  Receive Date: 20160505
  Receipt Date: 20160505
  Transmission Date: 20160815
  Serious: No
  Sender: FDA-Public Use
  Company Number: US-SA-2015SA156380

PATIENT
  Sex: Female
  Weight: 83 kg

DRUGS (2)
  1. HUMALOG [Concomitant]
     Active Substance: INSULIN LISPRO
     Indication: BLOOD GLUCOSE INCREASED
  2. APIDRA [Suspect]
     Active Substance: INSULIN GLULISINE
     Indication: BLOOD GLUCOSE INCREASED
     Route: 065

REACTIONS (2)
  - Blood glucose increased [Unknown]
  - Visual impairment [Unknown]
